FAERS Safety Report 7774249-4 (Version None)
Quarter: 2011Q3

REPORT INFORMATION
  Report Type: 
  Country: None (occurrence: None)
  Receive Date: 20110923
  Receipt Date: 20110906
  Transmission Date: 20111222
  Serious: Yes (Hospitalization)
  Sender: FDA-Public Use
  Company Number: ES-SANOFI-AVENTIS-2011SA057935

PATIENT
  Age: 76 Year
  Sex: Male
  Weight: 83 kg

DRUGS (7)
  1. ASPIRIN [Concomitant]
  2. NITROGLYCERIN [Concomitant]
  3. DRONEDARONE HCL [Suspect]
     Indication: ATRIAL FIBRILLATION
     Route: 048
  4. PLAVIX [Concomitant]
  5. EMCORETIC [Concomitant]
  6. SERETIDE [Concomitant]
  7. ATROVENT [Concomitant]

REACTIONS (2)
  - PNEUMONIA [None]
  - ISCHAEMIC STROKE [None]
